FAERS Safety Report 12754306 (Version 1)
Quarter: 2016Q3

REPORT INFORMATION
  Report Type: Spontaneous
  Country: US (occurrence: US)
  Receive Date: 20160915
  Receipt Date: 20160915
  Transmission Date: 20161109
  Serious: Yes (Other)
  Sender: FDA-Public Use
  Company Number: US-ASTELLAS-2015US047232

PATIENT
  Age: 64 Year
  Sex: Male

DRUGS (3)
  1. LUPRON [Suspect]
     Active Substance: LEUPROLIDE ACETATE
     Indication: PRODUCT USED FOR UNKNOWN INDICATION
     Dosage: UNK, UNKNOWN FREQ.
     Route: 065
  2. XTANDI [Suspect]
     Active Substance: ENZALUTAMIDE
     Indication: PROSTATE CANCER
     Route: 048
  3. HYDROCODONE [Suspect]
     Active Substance: HYDROCODONE
     Indication: PRODUCT USED FOR UNKNOWN INDICATION
     Dosage: UNK, UNKNOWN FREQ.
     Route: 065

REACTIONS (23)
  - Photopsia [Unknown]
  - Malignant neoplasm progression [Unknown]
  - Frequent bowel movements [Unknown]
  - Peripheral swelling [Unknown]
  - Diarrhoea [Unknown]
  - Weight decreased [Unknown]
  - Peripheral swelling [Unknown]
  - Decreased appetite [Unknown]
  - Visual impairment [Unknown]
  - Oedema peripheral [Unknown]
  - Arthralgia [Unknown]
  - Dysgeusia [Unknown]
  - Pruritus [Unknown]
  - Pain [Unknown]
  - Hypoaesthesia [Unknown]
  - Joint swelling [Unknown]
  - Contusion [Unknown]
  - Flatulence [Unknown]
  - Abdominal discomfort [Unknown]
  - Musculoskeletal stiffness [Unknown]
  - Fatigue [Unknown]
  - Vision blurred [Unknown]
  - Pollakiuria [Unknown]

NARRATIVE: CASE EVENT DATE: 201605
